FAERS Safety Report 12668868 (Version 2)
Quarter: 2016Q3

REPORT INFORMATION
  Report Type: Spontaneous
  Country: US (occurrence: US)
  Receive Date: 20160819
  Receipt Date: 20160914
  Transmission Date: 20161109
  Serious: Yes (Hospitalization, Other)
  Sender: FDA-Public Use
  Company Number: US-PFIZER INC-2016340920

PATIENT
  Age: 60 Year
  Sex: Male
  Weight: 71 kg

DRUGS (8)
  1. SUTENT [Suspect]
     Active Substance: SUNITINIB MALATE
     Dosage: 37.5 MG, CYCLIC (28 DAYS ON/14 DAYS OFF)
     Dates: start: 20160715, end: 20160824
  2. KEPPRA [Concomitant]
     Active Substance: LEVETIRACETAM
     Dosage: UNK
  3. SUTENT [Suspect]
     Active Substance: SUNITINIB MALATE
     Indication: EPENDYMOMA MALIGNANT
     Dosage: 37.5 MG, DAILY
  4. COREG [Concomitant]
     Active Substance: CARVEDILOL
     Dosage: UNK
  5. LIPITOR [Concomitant]
     Active Substance: ATORVASTATIN CALCIUM
     Dosage: UNK
  6. VIMPAT [Concomitant]
     Active Substance: LACOSAMIDE
     Dosage: UNK
  7. GLIPIZIDE. [Concomitant]
     Active Substance: GLIPIZIDE
     Dosage: UNK
  8. LISINOPRIL. [Concomitant]
     Active Substance: LISINOPRIL
     Dosage: UNK

REACTIONS (9)
  - Brain neoplasm [Unknown]
  - Haemorrhage [Unknown]
  - Accident [Unknown]
  - Fall [Unknown]
  - Seizure [Unknown]
  - Product use issue [Unknown]
  - Second primary malignancy [Unknown]
  - Diarrhoea [Unknown]
  - Weight decreased [Unknown]
